FAERS Safety Report 5963607-6 (Version None)
Quarter: 2008Q4

REPORT INFORMATION
  Report Type: 
  Country: None (occurrence: None)
  Receive Date: 20081124
  Receipt Date: 20081021
  Transmission Date: 20090506
  Serious: Yes (Hospitalization, Other)
  Sender: FDA-Public Use
  Company Number: JP-MERCK-0809USA04248

PATIENT
  Age: 28 Year
  Sex: Female

DRUGS (11)
  1. PEPCID RPD [Suspect]
     Indication: GASTRIC ULCER
     Route: 048
     Dates: start: 20050709
  2. CALONAL [Suspect]
     Indication: TONSILLITIS
     Route: 048
     Dates: start: 20050705, end: 20050709
  3. SOLON [Concomitant]
     Route: 048
     Dates: start: 20050705, end: 20050709
  4. LOXONIN [Concomitant]
     Indication: TONSILLITIS
     Route: 048
     Dates: start: 20050705, end: 20050707
  5. BANAN [Concomitant]
     Indication: TONSILLITIS
     Route: 048
     Dates: start: 20050705, end: 20050709
  6. VOLTAREN [Concomitant]
     Indication: TONSILLITIS
     Route: 054
     Dates: start: 20050705
  7. SELBEX [Concomitant]
     Indication: GASTRIC ULCER
     Route: 048
     Dates: start: 20050707
  8. LAC-B [Concomitant]
     Indication: GASTRIC ULCER
     Route: 048
     Dates: start: 20050707
  9. THIATON [Concomitant]
     Indication: GASTRIC ULCER
     Route: 048
     Dates: start: 20050703
  10. ALLEGRA [Concomitant]
     Indication: DERMATITIS ALLERGIC
     Route: 048
     Dates: start: 20050707
  11. NIPOLAZIN [Concomitant]
     Indication: DERMATITIS ALLERGIC
     Route: 048
     Dates: start: 20050707

REACTIONS (3)
  - HEPATOMEGALY [None]
  - NEPHROTIC SYNDROME [None]
  - STEVENS-JOHNSON SYNDROME [None]
